FAERS Safety Report 12936083 (Version 1)
Quarter: 2016Q4

REPORT INFORMATION
  Report Type: Report from Study
  Country: JP (occurrence: JP)
  Receive Date: 20161114
  Receipt Date: 20161114
  Transmission Date: 20170207
  Serious: Yes (Other)
  Sender: FDA-Public Use
  Company Number: JP-ROCHE-1854284

PATIENT
  Age: 59 Year
  Sex: Female

DRUGS (3)
  1. TRASTUZUMAB [Suspect]
     Active Substance: TRASTUZUMAB
     Indication: HER-2 POSITIVE BREAST CANCER
     Dosage: LOADING DOSE
     Route: 042
  2. TRASTUZUMAB [Suspect]
     Active Substance: TRASTUZUMAB
     Dosage: ON DAY 1 OF THE SECOND AND SUBSEQUENT 21-DAY CYCLES.
     Route: 042
  3. ERIBULIN MESYLATE [Suspect]
     Active Substance: ERIBULIN MESYLATE
     Indication: HER-2 POSITIVE BREAST CANCER
     Dosage: EQUIVALENT TO ERIBULIN MESYLATE (ERI) 1.23 MG/M2 (EXPRESSED AS FREE BASE) WAS ADMINISTERED INTRAVENO
     Route: 042

REACTIONS (3)
  - Neutropenia [Unknown]
  - Febrile neutropenia [Unknown]
  - Hypertriglyceridaemia [Unknown]
